FAERS Safety Report 10628213 (Version 2)
Quarter: 2014Q4

REPORT INFORMATION
  Report Type: Spontaneous
  Country: US (occurrence: US)
  Receive Date: 20141205
  Receipt Date: 20141205
  Transmission Date: 20150529
  Serious: No
  Sender: FDA-Public Use
  Company Number: US-BRISTOL-MYERS SQUIBB COMPANY-21309893

PATIENT
  Age: 78 Year
  Sex: Female
  Weight: 49 kg

DRUGS (1)
  1. AZACTAM [Suspect]
     Active Substance: AZTREONAM
     Indication: URINARY TRACT INFECTION
     Dates: start: 20140813

REACTIONS (1)
  - Poor venous access [Unknown]
